FAERS Safety Report 8657941 (Version 2)
Quarter: 2013Q1

REPORT INFORMATION
  Report Type: Spontaneous
  Country: FI (occurrence: FI)
  Receive Date: 20120710
  Receipt Date: 20130108
  Transmission Date: 20140127
  Serious: Yes (Hospitalization, Disabling)
  Sender: FDA-Public Use
  Company Number: PHHY2012FI057995

PATIENT
  Age: 60 Year
  Sex: Female

DRUGS (12)
  1. ACLASTA [Suspect]
     Indication: OSTEOPOROSIS
     Dosage: 5 MG, YEARLY
     Route: 042
     Dates: start: 2010
  2. ACLASTA [Suspect]
     Dosage: 5 MG, YEARLY
     Route: 042
     Dates: start: 2011, end: 2011
  3. BONVIVA [Suspect]
     Indication: OSTEOPOROSIS
     Dosage: 150 MG, PER MONTH
     Dates: start: 2007, end: 2010
  4. FOSAMAX [Suspect]
     Indication: OSTEOPOROSIS
     Dosage: 70 MG, PER WEEK
     Dates: start: 2000, end: 2007
  5. DIDRONATE + CALSIUM [Suspect]
  6. ANTIBIOTICS [Concomitant]
     Indication: INFECTION
  7. HUMIRA [Concomitant]
  8. STEROID [Concomitant]
     Dates: start: 1980
  9. MEDROL [Concomitant]
     Dosage: 2 MG, QD
  10. MEDROL [Concomitant]
     Dosage: 4 MG, UNK
  11. KLEXANE [Concomitant]
  12. CALCIUM WITH VITAMIN D [Concomitant]

REACTIONS (20)
  - Fall [Not Recovered/Not Resolved]
  - Hand fracture [Not Recovered/Not Resolved]
  - Cervical vertebral fracture [Not Recovered/Not Resolved]
  - Neck pain [Not Recovered/Not Resolved]
  - Post procedural pulmonary embolism [Not Recovered/Not Resolved]
  - Cushing^s syndrome [Not Recovered/Not Resolved]
  - Skin atrophy [Not Recovered/Not Resolved]
  - Joint dislocation [Not Recovered/Not Resolved]
  - Limb discomfort [Unknown]
  - Femur fracture [Not Recovered/Not Resolved]
  - Bone fragmentation [Not Recovered/Not Resolved]
  - Bone disorder [Not Recovered/Not Resolved]
  - Hyperkeratosis [Not Recovered/Not Resolved]
  - Fracture delayed union [Not Recovered/Not Resolved]
  - Atypical femur fracture [Not Recovered/Not Resolved]
  - Pain [Not Recovered/Not Resolved]
  - Pain in extremity [Not Recovered/Not Resolved]
  - Arthralgia [Unknown]
  - Muscular weakness [Not Recovered/Not Resolved]
  - Fracture nonunion [Not Recovered/Not Resolved]
